FAERS Safety Report 22945678 (Version 2)
Quarter: 2023Q4

REPORT INFORMATION
  Report Type: Report from Study
  Country: AT (occurrence: AT)
  Receive Date: 20230914
  Receipt Date: 20231027
  Transmission Date: 20240110
  Serious: Yes (Death, Hospitalization)
  Sender: FDA-Public Use
  Company Number: AT-JNJFOC-20230572146

PATIENT
  Age: 8 Decade
  Sex: Male
  Weight: 85 kg

DRUGS (23)
  1. SELEXIPAG [Suspect]
     Active Substance: SELEXIPAG
     Indication: Pulmonary arterial hypertension
     Route: 048
     Dates: start: 20190920, end: 20220722
  2. SELEXIPAG [Suspect]
     Active Substance: SELEXIPAG
     Route: 048
     Dates: start: 20221019
  3. MACITENTAN [Suspect]
     Active Substance: MACITENTAN
     Indication: Pulmonary arterial hypertension
     Route: 048
     Dates: start: 20181221
  4. REVATIO [Concomitant]
     Active Substance: SILDENAFIL CITRATE
     Indication: Pulmonary arterial hypertension
     Route: 048
     Dates: start: 20181220
  5. COMBIVENT [Concomitant]
     Active Substance: ALBUTEROL SULFATE\IPRATROPIUM BROMIDE
     Indication: Dyspnoea
     Route: 055
     Dates: start: 20210729, end: 20211001
  6. ENTEROCOCCUS FAECIUM [Concomitant]
     Active Substance: ENTEROCOCCUS FAECIUM
     Indication: Prophylaxis
     Route: 048
     Dates: start: 20210720
  7. COLCHICINE [Concomitant]
     Active Substance: COLCHICINE
     Indication: Gouty arthritis
     Route: 048
     Dates: start: 20191018, end: 20191021
  8. FUROSEMIDE [Concomitant]
     Active Substance: FUROSEMIDE
     Indication: Pulmonary arterial hypertension
     Route: 048
     Dates: end: 20200305
  9. FUROSEMIDE [Concomitant]
     Active Substance: FUROSEMIDE
     Route: 048
     Dates: start: 20200306
  10. PANTOPRAZOLE [Concomitant]
     Active Substance: PANTOPRAZOLE
     Indication: Prophylaxis
     Route: 048
     Dates: start: 20191018, end: 20200612
  11. FEBUXOSTAT [Concomitant]
     Active Substance: FEBUXOSTAT
     Indication: Hypercholesterolaemia
     Route: 048
     Dates: start: 20190802, end: 2019
  12. FEBUXOSTAT [Concomitant]
     Active Substance: FEBUXOSTAT
     Route: 048
     Dates: start: 20200305
  13. DEXIBUPROFEN [Concomitant]
     Active Substance: DEXIBUPROFEN
     Indication: Pain
     Route: 048
     Dates: start: 20190920, end: 20191017
  14. DICLOFENAC SODIUM [Concomitant]
     Active Substance: DICLOFENAC\DICLOFENAC SODIUM
     Indication: Gouty arthritis
     Route: 048
     Dates: start: 20190822, end: 20191017
  15. RAMIPRIL [Concomitant]
     Active Substance: RAMIPRIL
     Indication: Cardiac failure
     Route: 048
     Dates: start: 20180404, end: 20190906
  16. KCL RETARD SLOW K [Concomitant]
     Indication: Hypokalaemia
     Route: 048
     Dates: start: 20191018, end: 20200305
  17. PREDNISOLONE [Concomitant]
     Active Substance: PREDNISOLONE
     Indication: Gouty arthritis
     Route: 048
     Dates: start: 20191018, end: 2020
  18. PREDNISOLONE [Concomitant]
     Active Substance: PREDNISOLONE
     Route: 048
     Dates: start: 20200305
  19. OLODATEROL HYDROCHLORIDE\TIOTROPIUM BROMIDE MONOHYDRATE [Concomitant]
     Active Substance: OLODATEROL HYDROCHLORIDE\TIOTROPIUM BROMIDE MONOHYDRATE
     Indication: Chronic obstructive pulmonary disease
     Route: 055
     Dates: start: 20181016
  20. ATORVASTATIN [Concomitant]
     Active Substance: ATORVASTATIN
     Indication: Hypercholesterolaemia
     Route: 048
     Dates: start: 20180404
  21. ASPIRIN [Concomitant]
     Active Substance: ASPIRIN
     Indication: Acute myocardial infarction
     Route: 048
     Dates: start: 20180404
  22. NEBIVOLOL HYDROCHLORIDE [Concomitant]
     Active Substance: NEBIVOLOL HYDROCHLORIDE
     Indication: Cardiac failure
     Route: 048
     Dates: start: 20180405
  23. ENTEROCOCCUS FAECIUM [Concomitant]
     Active Substance: ENTEROCOCCUS FAECIUM
     Indication: Prophylaxis
     Route: 048
     Dates: start: 20210720

REACTIONS (6)
  - Cardiac failure [Fatal]
  - Oedema peripheral [Recovered/Resolved]
  - Emphysema [Recovered/Resolved]
  - Organising pneumonia [Unknown]
  - Dyspnoea [Unknown]
  - Arrhythmia [Unknown]

NARRATIVE: CASE EVENT DATE: 20230420
